FAERS Safety Report 14067842 (Version 1)
Quarter: 2017Q4

REPORT INFORMATION
  Report Type: Spontaneous
  Country: US (occurrence: US)
  Receive Date: 20171009
  Receipt Date: 20171009
  Transmission Date: 20180321
  Serious: No
  Sender: FDA-Public Use
  Company Number: US-LUNDBECK-DKLU2029673

PATIENT
  Sex: Male

DRUGS (1)
  1. NORTHERA [Suspect]
     Active Substance: DROXIDOPA
     Indication: PRODUCT USED FOR UNKNOWN INDICATION
     Dosage: SCHEDULE C, TITRATING OFF
     Route: 065
     Dates: start: 20170311, end: 20170419

REACTIONS (3)
  - Back pain [Unknown]
  - Drug ineffective [Unknown]
  - Feeling abnormal [Unknown]
